FAERS Safety Report 5587445-1 (Version None)
Quarter: 2007Q4

REPORT INFORMATION
  Report Type: 
  Country: None (occurrence: None)
  Receive Date: 20071205
  Receipt Date: 20070907
  Transmission Date: 20080405
  Serious: Yes (Other)
  Sender: FDA-Public Use
  Company Number: HQWYE085210SEP07

PATIENT
  Age: 56 Year
  Sex: Female
  Weight: 88.53 kg

DRUGS (3)
  1. EFFEXOR XR [Suspect]
     Indication: DEPRESSION
     Dosage: 75 MG 1X PER 1 DAY, ORAL ; 75 MG 3X PER 1 DAY, ORAL
     Route: 048
     Dates: start: 20040101, end: 20070601
  2. EFFEXOR XR [Suspect]
     Indication: DEPRESSION
     Dosage: 75 MG 1X PER 1 DAY, ORAL ; 75 MG 3X PER 1 DAY, ORAL
     Route: 048
     Dates: start: 20070101
  3. PREVACID [Concomitant]

REACTIONS (2)
  - ALANINE AMINOTRANSFERASE INCREASED [None]
  - ASPARTATE AMINOTRANSFERASE INCREASED [None]
